FAERS Safety Report 7878673-0 (Version None)
Quarter: 2011Q4

REPORT INFORMATION
  Report Type: 
  Country: None (occurrence: None)
  Receive Date: 20111101
  Receipt Date: 20111020
  Transmission Date: 20120403
  Serious: Yes (Hospitalization)
  Sender: FDA-Public Use
  Company Number: FR-BRISTOL-MYERS SQUIBB COMPANY-16187114

PATIENT
  Age: 45 Year
  Sex: Male

DRUGS (4)
  1. PREZISTA [Suspect]
     Indication: ANTIRETROVIRAL THERAPY
     Dates: start: 20090101
  2. IRBESARTAN [Suspect]
     Route: 048
     Dates: start: 20060101
  3. TRUVADA [Suspect]
     Indication: ANTIRETROVIRAL THERAPY
     Dates: start: 20090101
  4. NORVIR [Suspect]
     Indication: ANTIRETROVIRAL THERAPY
     Dates: start: 20090101

REACTIONS (1)
  - PORPHYRIA NON-ACUTE [None]
